FAERS Safety Report 9384717 (Version 1)
Quarter: 2013Q3

REPORT INFORMATION
  Report Type: Report from Study
  Country: CO (occurrence: CO)
  Receive Date: 20130705
  Receipt Date: 20130705
  Transmission Date: 20140515
  Serious: Yes (Death)
  Sender: FDA-Public Use
  Company Number: CO-SANOFI-AVENTIS-2013SA065658

PATIENT
  Age: 76 Year
  Sex: Male

DRUGS (1)
  1. LANTUS [Suspect]
     Indication: DIABETES MELLITUS
     Dosage: DOSE: 25 UNITS IN THE MORNING AND 10 UNITS AT NIGHT
     Route: 058
     Dates: end: 20130610

REACTIONS (2)
  - Cardiac arrest [Fatal]
  - Drug administration error [Unknown]
